FAERS Safety Report 8622712-6 (Version None)
Quarter: 2012Q3

REPORT INFORMATION
  Report Type: 
  Country: None (occurrence: None)
  Receive Date: 20120827
  Receipt Date: 20120816
  Transmission Date: 20120928
  Serious: Yes (Other)
  Sender: FDA-Public Use
  Company Number: US-SANOFI-AVENTIS-2012SA058925

PATIENT
  Age: 61 Year
  Sex: Male

DRUGS (4)
  1. LANTUS [Suspect]
     Dosage: DOSE INCREASED TO 70 UNITS AFTER THE HEART SURGERY.
     Route: 058
     Dates: start: 20120101
  2. LANTUS [Suspect]
     Dosage: DOSE INCREASED TO 70 UNITS AFTER THE HEART SURGERY.
     Route: 058
     Dates: start: 20120101
  3. SOLOSTAR [Suspect]
     Dates: start: 20120101
  4. SOLOSTAR [Suspect]
     Dates: start: 20120101

REACTIONS (1)
  - CARDIAC DISORDER [None]
